FAERS Safety Report 10764737 (Version 5)
Quarter: 2015Q1

REPORT INFORMATION
  Report Type: Report from Study
  Country: IT (occurrence: IT)
  Receive Date: 20150205
  Receipt Date: 20150224
  Transmission Date: 20150721
  Serious: Yes (Hospitalization)
  Sender: FDA-Public Use
  Company Number: IT-ROCHE-1398052

PATIENT
  Age: 82 Year
  Sex: Female
  Weight: 55 kg

DRUGS (9)
  1. OBINUTUZUMAB [Suspect]
     Active Substance: OBINUTUZUMAB
     Indication: CHRONIC LYMPHOCYTIC LEUKAEMIA
     Route: 042
     Dates: start: 20140505, end: 20140505
  2. BENDAMUSTINE [Suspect]
     Active Substance: BENDAMUSTINE
     Indication: CHRONIC LYMPHOCYTIC LEUKAEMIA
     Dosage: TEMPORARILY INTERRUPTED ON 06/MAY/2014. LAST REPORTED DOSE (C4D2) ON 05/AUG/2014.
     Route: 042
     Dates: start: 20140505, end: 20140506
  3. BENDAMUSTINE [Suspect]
     Active Substance: BENDAMUSTINE
     Dosage: (C2D1)
     Route: 042
     Dates: start: 20140609
  4. BACTRIM [Concomitant]
     Active Substance: SULFAMETHOXAZOLE\TRIMETHOPRIM
     Route: 048
     Dates: start: 20140505, end: 20150201
  5. COD EFFERALGAN [Concomitant]
     Dosage: 500 MG+ 30 MG, AS REQUIRED
     Route: 048
     Dates: start: 20120427
  6. ALLOPURINOL. [Concomitant]
     Active Substance: ALLOPURINOL
     Route: 048
     Dates: start: 20140429, end: 20150201
  7. ACYCLOVIR. [Concomitant]
     Active Substance: ACYCLOVIR
     Route: 048
     Dates: start: 20140505, end: 20150201
  8. OBINUTUZUMAB [Suspect]
     Active Substance: OBINUTUZUMAB
     Dosage: LAST REPORTED DOSE C4D1 ON 04/AUG/2014.
     Route: 042
     Dates: start: 20140519
  9. MICROSER [Concomitant]
     Dosage: 12.5 MG/ML, AS REQUIRED
     Route: 048
     Dates: start: 20140409

REACTIONS (1)
  - Hypoxia [Recovered/Resolved]

NARRATIVE: CASE EVENT DATE: 20140505
